FAERS Safety Report 9256986 (Version 2)
Quarter: 2014Q1

REPORT INFORMATION
  Report Type: Report from Study
  Country: CA (occurrence: CA)
  Receive Date: 20130426
  Receipt Date: 20140128
  Transmission Date: 20141002
  Serious: Yes (Hospitalization)
  Sender: FDA-Public Use
  Company Number: CA-UCBSA-084129

PATIENT
  Age: 36 Year
  Sex: Female
  Weight: 63.63 kg

DRUGS (6)
  1. CIMZIA [Suspect]
     Indication: CROHN^S DISEASE
     Route: 058
     Dates: start: 20130327, end: 20130409
  2. PREDNISONE [Concomitant]
     Indication: CROHN^S DISEASE
     Route: 048
     Dates: start: 2011
  3. VITAMIN B12 [Concomitant]
     Dosage: UNKNOWN DOSE
     Route: 048
  4. AZATHIOPRINE [Concomitant]
     Indication: CROHN^S DISEASE
     Route: 048
     Dates: start: 2008
  5. VITAMIN D [Concomitant]
     Route: 048
  6. TYLENOL [Concomitant]
     Indication: PAIN
     Dosage: 500 MG  PRN
     Route: 048

REACTIONS (4)
  - Diarrhoea haemorrhagic [Recovered/Resolved with Sequelae]
  - Pain [Unknown]
  - Diarrhoea [Recovered/Resolved with Sequelae]
  - Drug ineffective [Recovered/Resolved]
